FAERS Safety Report 15163361 (Version 1)
Quarter: 2018Q3

REPORT INFORMATION
  Report Type: Spontaneous
  Country: FI (occurrence: FI)
  Receive Date: 20180719
  Receipt Date: 20180719
  Transmission Date: 20181010
  Serious: Yes (Other)
  Sender: FDA-Public Use
  Company Number: FI-TOLMAR, INC.-2018FI007142

PATIENT

DRUGS (2)
  1. ELIGARD [Suspect]
     Active Substance: LEUPROLIDE ACETATE
     Indication: PROSTATE CANCER
     Dosage: UNK, UNK
     Route: 065
  2. DEGARELIX [Suspect]
     Active Substance: DEGARELIX
     Indication: PROSTATE CANCER
     Dosage: UNK
     Route: 065

REACTIONS (4)
  - Off label use [Unknown]
  - Metastases to lymph nodes [Unknown]
  - Hormone-refractory prostate cancer [Unknown]
  - Metastases to liver [Recovering/Resolving]
